FAERS Safety Report 8964898 (Version 1)
Quarter: 2012Q4

REPORT INFORMATION
  Report Type: 
  Country: NO (occurrence: NO)
  Receive Date: 20121213
  Receipt Date: 20121213
  Transmission Date: 20130627
  Serious: Yes (Hospitalization)
  Sender: FDA-Public Use
  Company Number: PHHY2012NO113377

PATIENT
  Age: 89 Year
  Sex: Male

DRUGS (14)
  1. SIMVASTATIN [Suspect]
     Dosage: 40 mg, QD
  2. FUCIDIN [Suspect]
     Dosage: 500 mg, BID
     Dates: start: 20121004, end: 20121012
  3. DIURAL [Suspect]
     Dosage: 20 mg, QD
  4. SELO-ZOK [Suspect]
     Dosage: 50 mg, QD
  5. SELO-ZOK [Suspect]
     Dosage: 25 mg, QD
  6. DICLOCIL [Suspect]
     Indication: THROMBOPHLEBITIS
     Dosage: 500 mg, TID
     Dates: start: 20121004, end: 20121012
  7. DICLOCIL [Suspect]
     Indication: WOUND INFECTION
  8. TRIATEC [Suspect]
     Dosage: 1.25 mg, BID
  9. KALEORID [Suspect]
     Dosage: 750 mg, BID
  10. PLAVIX [Concomitant]
  11. HIRUDOID [Concomitant]
  12. TRIOBE [Concomitant]
  13. SOMAC [Concomitant]
  14. NIFEREX [Concomitant]

REACTIONS (3)
  - Blood pressure decreased [Unknown]
  - Myoglobin blood increased [Unknown]
  - Blood creatinine increased [Unknown]
